FAERS Safety Report 5696391-4 (Version None)
Quarter: 2008Q2

REPORT INFORMATION
  Report Type: 
  Country: None (occurrence: None)
  Receive Date: 20080404
  Receipt Date: 20080404
  Transmission Date: 20081010
  Serious: No
  Sender: FDA-Public Use
  Company Number: None

PATIENT
  Sex: Male
  Weight: 63.5036 kg

DRUGS (2)
  1. GADOLINIUM IV CONTRAST UNKNOWN UNKNOWN [Suspect]
     Indication: NUCLEAR MAGNETIC RESONANCE IMAGING
     Dosage: 1 IV DOSE PRIOR TO SCAN ONCE IV BOLUS DOSE ADM. OVER 60 SECONDS
     Route: 040
     Dates: start: 20050601, end: 20050601
  2. GADOLINIUM IV CONTRAST UNKNOWN UNKNOWN [Suspect]
     Indication: PANCREATIC PSEUDOCYST
     Dosage: 1 IV DOSE PRIOR TO SCAN ONCE IV BOLUS DOSE ADM. OVER 60 SECONDS
     Route: 040
     Dates: start: 20050601, end: 20050601

REACTIONS (6)
  - ABDOMINAL PAIN [None]
  - ABDOMINAL PAIN UPPER [None]
  - ABSCESS [None]
  - BLOOD GLUCOSE INCREASED [None]
  - RASH MACULAR [None]
  - SCAR [None]
